FAERS Safety Report 7263177-9 (Version None)
Quarter: 2011Q1

REPORT INFORMATION
  Report Type: 
  Country: None (occurrence: None)
  Receive Date: 20110130
  Receipt Date: 20101012
  Transmission Date: 20110831
  Serious: No
  Sender: FDA-Public Use
  Company Number: US-ABBOTT-10P-163-0677841-00

PATIENT
  Age: 40 Year
  Sex: Female

DRUGS (6)
  1. PENTASA [Concomitant]
     Indication: CROHN'S DISEASE
  2. HUMIRA [Suspect]
     Dosage: DAY 15
  3. HUMIRA [Suspect]
  4. OCELLA [Concomitant]
     Indication: CONTRACEPTION
  5. PANTOPRAZOLE [Concomitant]
     Indication: GASTROOESOPHAGEAL REFLUX DISEASE
  6. HUMIRA [Suspect]
     Indication: CROHN'S DISEASE
     Dosage: DAY 1
     Dates: start: 20101012

REACTIONS (3)
  - INJECTION SITE PAIN [None]
  - DRUG DOSE OMISSION [None]
  - DEVICE MALFUNCTION [None]
